FAERS Safety Report 8537582-4 (Version None)
Quarter: 2012Q3

REPORT INFORMATION
  Report Type: 
  Country: None (occurrence: None)
  Receive Date: 20120725
  Receipt Date: 20120716
  Transmission Date: 20120928
  Serious: Yes (Hospitalization)
  Sender: FDA-Public Use
  Company Number: FR-CELGENEUS-056-21880-12071925

PATIENT
  Sex: Male
  Weight: 80 kg

DRUGS (27)
  1. CARFILZOMIB [Suspect]
     Route: 065
     Dates: start: 20110428, end: 20110506
  2. CARFILZOMIB [Suspect]
     Route: 065
     Dates: start: 20111205, end: 20111220
  3. ACETAMINOPHEN AND TRAMADOL HCL [Concomitant]
     Indication: BONE PAIN
     Dosage: 2 TABLET
     Route: 048
     Dates: start: 20111130
  4. ASPIRIN [Concomitant]
     Indication: ANTICOAGULANT THERAPY
     Dosage: 75 MILLIGRAM
     Route: 048
     Dates: start: 20110421
  5. DEXAMETHASONE [Suspect]
     Indication: MULTIPLE MYELOMA
     Route: 065
     Dates: start: 20110421, end: 20110512
  6. OMEPRAZOLE [Concomitant]
     Indication: PROPHYLAXIS
     Dosage: 20 MILLIGRAM
     Route: 048
     Dates: start: 20110412
  7. RABEPRAZOLE SODIUM [Concomitant]
     Indication: PROPHYLAXIS
     Dosage: 20 MILLIGRAM
     Route: 048
     Dates: start: 20110421
  8. CARFILZOMIB [Suspect]
     Route: 065
     Dates: start: 20110519, end: 20110520
  9. CARFILZOMIB [Suspect]
     Route: 065
     Dates: start: 20110912, end: 20110927
  10. CIPROFLOXACIN HYDROCHLORIDE [Concomitant]
     Indication: ANTIBIOTIC PROPHYLAXIS
     Dosage: 500 MILLIGRAM
     Route: 048
     Dates: start: 20110421
  11. ZOMETA [Concomitant]
     Indication: OSTEOPOROSIS PROPHYLAXIS
     Route: 041
     Dates: start: 20120412
  12. CARFILZOMIB [Suspect]
     Route: 065
     Dates: start: 20110526, end: 20110607
  13. REVLIMID [Suspect]
     Indication: MULTIPLE MYELOMA
     Dosage: 25 MILLIGRAM
     Route: 048
     Dates: start: 20110421, end: 20110511
  14. CARFILZOMIB [Suspect]
     Route: 065
     Dates: start: 20120102, end: 20120110
  15. CARFILZOMIB [Suspect]
     Route: 065
     Dates: start: 20120116, end: 20120117
  16. CARFILZOMIB [Suspect]
     Route: 065
     Dates: start: 20120326, end: 20120411
  17. PHENOXYMETHYL PENICILLIN [Concomitant]
     Indication: ANTIBIOTIC PROPHYLAXIS
     Dosage: 1 MIU
     Route: 048
     Dates: start: 20110723
  18. LEUCOVORIN CALCIUM [Concomitant]
     Indication: PROPHYLAXIS
     Route: 048
     Dates: start: 20110718
  19. ACETAMINOPHEN [Concomitant]
     Indication: BONE PAIN
     Route: 048
     Dates: start: 20110829
  20. REVLIMID [Suspect]
     Dosage: 25 MILLIGRAM
     Route: 048
     Dates: start: 20120521, end: 20120610
  21. REVLIMID [Suspect]
     Dates: start: 20070522, end: 20070716
  22. CARFILZOMIB [Suspect]
     Route: 065
     Dates: start: 20111010, end: 20111025
  23. VALACYCLOVIR HYDROCHLORIDE [Concomitant]
     Indication: ANTIVIRAL PROPHYLAXIS
     Dosage: 500 MILLIGRAM
     Route: 048
     Dates: start: 20110421
  24. DEXAMETHASONE [Suspect]
     Route: 065
     Dates: start: 20120521, end: 20120611
  25. CARFILZOMIB [Suspect]
     Indication: MULTIPLE MYELOMA
     Route: 065
     Dates: start: 20110421, end: 20110422
  26. CARFILZOMIB [Suspect]
     Route: 065
     Dates: start: 20120618, end: 20120703
  27. BACTRIM DS [Concomitant]
     Indication: ANTIBIOTIC PROPHYLAXIS
     Route: 048
     Dates: start: 20110723

REACTIONS (1)
  - BRAIN MASS [None]
